FAERS Safety Report 4981784-0 (Version None)
Quarter: 2006Q2

REPORT INFORMATION
  Report Type: 
  Country: None (occurrence: None)
  Receive Date: 20060425
  Receipt Date: 20060412
  Transmission Date: 20061013
  Serious: Yes (Congenital Anomaly)
  Sender: FDA-Public Use
  Company Number: US-GLAXOSMITHKLINE-A0602357B

PATIENT

DRUGS (1)
  1. LAMOTRIGINE [Suspect]
     Dosage: 125MG UNKNOWN

REACTIONS (1)
  - CONGENITAL ANOMALY [None]
